FAERS Safety Report 7213852-7 (Version None)
Quarter: 2011Q1

REPORT INFORMATION
  Report Type: 
  Country: None (occurrence: None)
  Receive Date: 20110106
  Receipt Date: 20110104
  Transmission Date: 20110831
  Serious: Yes (Death, Hospitalization, Other)
  Sender: FDA-Public Use
  Company Number: US-ELI_LILLY_AND_COMPANY-US201011000378

PATIENT
  Sex: Female

DRUGS (3)
  1. LANTUS [Concomitant]
  2. HUMULIN R [Suspect]
     Indication: TYPE 2 DIABETES MELLITUS
     Dosage: UNK, AS NEEDED
     Dates: start: 20030101
  3. DEXAMETHASONE [Concomitant]
     Indication: BRAIN OEDEMA

REACTIONS (2)
  - B-CELL LYMPHOMA STAGE IV [None]
  - TRANSIENT ISCHAEMIC ATTACK [None]
